FAERS Safety Report 8291649 (Version 5)
Quarter: 2013Q2

REPORT INFORMATION
  Report Type: Spontaneous
  Country: US (occurrence: None)
  Receive Date: 20111122
  Receipt Date: 20120426
  Transmission Date: 20140414
  Serious: Yes (Other)
  Sender: FDA-Public Use
  Company Number: PHHY2011US52997

PATIENT
  Age: 41 Year
  Sex: Female

DRUGS (2)
  1. GILENYA [Suspect]
     Indication: MULTIPLE SCLEROSIS
     Dosage: 0.5 MG, DAILY, ORAL
     Route: 048
     Dates: start: 20110603, end: 201109
  2. PREDNISONE [Concomitant]

REACTIONS (10)
  - NAUSEA [None]
  - PYREXIA [None]
  - VOMITING [None]
  - Irritability [None]
  - Agitation [None]
  - Ear discomfort [None]
  - Ear pain [None]
  - Flushing [None]
  - Blood pressure increased [None]
  - Vision blurred [None]
